FAERS Safety Report 9796607 (Version 1)
Quarter: 2014Q1

REPORT INFORMATION
  Report Type: Spontaneous
  Country: US (occurrence: US)
  Receive Date: 20140103
  Receipt Date: 20140103
  Transmission Date: 20141002
  Serious: No
  Sender: FDA-Public Use
  Company Number: US-009507513-1401USA000732

PATIENT
  Age: 60 Year
  Sex: Female

DRUGS (2)
  1. CLARITIN-D [Suspect]
     Indication: SNEEZING
     Dosage: UNK, HS
     Route: 048
  2. CLARITIN-D [Suspect]
     Indication: UPPER RESPIRATORY TRACT CONGESTION

REACTIONS (1)
  - Insomnia [Unknown]
